FAERS Safety Report 10310689 (Version 1)
Quarter: 2014Q3

REPORT INFORMATION
  Report Type: Spontaneous
  Country: GB (occurrence: None)
  Receive Date: 20140714
  Receipt Date: 20140714
  Transmission Date: 20150326
  Serious: Yes (Life-Threatening, Hospitalization, Disabling, Other)
  Sender: FDA-Public Use
  Company Number: AUR-APL-2014-07336

PATIENT
  Age: 61 Year
  Sex: Female

DRUGS (8)
  1. CETIRIZINE (CETIRIZINE) [Concomitant]
     Active Substance: CETIRIZINE HYDROCHLORIDE
  2. SALBUTAMOL (SALBUTAMOL) [Concomitant]
     Active Substance: ALBUTEROL
  3. IPRATROPIUM BROMIDE (IPRATROPIUM BROMIDE) [Concomitant]
  4. TIOTROPIUM BROMIDE (TIOTROPIUM BROMIDE) [Concomitant]
     Active Substance: TIOTROPIUM BROMIDE
  5. ALENDRONIC ACID [Suspect]
     Active Substance: ALENDRONIC ACID
     Indication: OSTEOPOROSIS
     Route: 048
     Dates: start: 20140520
  6. RAMIPRIL (RAMIPRIL) [Concomitant]
     Active Substance: RAMIPRIL
  7. METHOTREXATE (METHOTREXATE) [Concomitant]
     Active Substance: METHOTREXATE
  8. ADCAL D3 [Concomitant]
     Active Substance: CALCIUM CARBONATE\CHOLECALCIFEROL

REACTIONS (7)
  - Haematemesis [None]
  - Duodenitis [None]
  - Gastric ulcer haemorrhage [None]
  - Brain injury [None]
  - Cardiac arrest [None]
  - Hypoxia [None]
  - Oesophageal ulcer haemorrhage [None]

NARRATIVE: CASE EVENT DATE: 20140624
